FAERS Safety Report 6802113-3 (Version None)
Quarter: 2010Q2

REPORT INFORMATION
  Report Type: 
  Country: None (occurrence: None)
  Receive Date: 20100629
  Receipt Date: 20071224
  Transmission Date: 20101027
  Serious: No
  Sender: FDA-Public Use
  Company Number: US-PFIZER INC-2007056495

PATIENT
  Sex: Male
  Weight: 77.3 kg

DRUGS (4)
  1. VIAGRA [Suspect]
     Indication: ERECTILE DYSFUNCTION
  2. SYNTHROID [Concomitant]
  3. CAPTOPRIL [Concomitant]
  4. LOVASTATIN [Concomitant]

REACTIONS (4)
  - DRUG INEFFECTIVE [None]
  - DYSPEPSIA [None]
  - NASAL CONGESTION [None]
  - VISUAL IMPAIRMENT [None]
